FAERS Safety Report 5988400-X (Version None)
Quarter: 2008Q4

REPORT INFORMATION
  Report Type: 
  Country: None (occurrence: None)
  Receive Date: 20081210
  Receipt Date: 20081126
  Transmission Date: 20090506
  Serious: Yes (Hospitalization)
  Sender: FDA-Public Use
  Company Number: DE-BAYER-200711190BVD

PATIENT
  Age: 61 Year
  Sex: Female
  Weight: 80 kg

DRUGS (98)
  1. SORAFENIB [Suspect]
     Indication: NON-SMALL CELL LUNG CANCER
     Dosage: TOTAL DAILY DOSE: 800 MG
     Route: 048
     Dates: start: 20070912, end: 20071024
  2. CISPLATIN [Suspect]
     Indication: NON-SMALL CELL LUNG CANCER
     Dosage: TOTAL DAILY DOSE: 138.75 MG
     Route: 042
     Dates: start: 20071026, end: 20071026
  3. CISPLATIN [Suspect]
     Dosage: TOTAL DAILY DOSE: 137 MG
     Route: 042
     Dates: start: 20070912, end: 20070912
  4. CISPLATIN [Suspect]
     Dosage: TOTAL DAILY DOSE: 138.75 MG
     Route: 042
     Dates: start: 20071004, end: 20071004
  5. GEMCITABINE HCL [Suspect]
     Indication: NON-SMALL CELL LUNG CANCER
     Dosage: AS USED: 1250 MG/M2
     Dates: start: 20070912, end: 20070912
  6. GEMCITABINE HCL [Suspect]
     Dosage: AS USED: 1250 MG/M2
     Dates: start: 20070919, end: 20070919
  7. GEMCITABINE HCL [Suspect]
     Dosage: AS USED: 1250 MG/M2
     Dates: start: 20071004, end: 20071004
  8. GEMCITABINE HCL [Suspect]
     Dosage: AS USED: 1250 MG/M2
     Dates: start: 20071011, end: 20071011
  9. GEMCITABINE HCL [Suspect]
     Dosage: AS USED: 1250 MG/M2
     Dates: start: 20071026, end: 20071026
  10. AUGMENTIN '125' [Concomitant]
     Indication: PYREXIA
     Route: 048
     Dates: start: 20071029, end: 20071030
  11. AUGMENTIN '125' [Concomitant]
     Route: 048
     Dates: start: 20071028, end: 20071028
  12. NOVALGIN [Concomitant]
     Indication: ABDOMINAL PAIN
     Route: 042
     Dates: start: 20071030, end: 20071030
  13. NOVALGIN [Concomitant]
     Route: 065
     Dates: start: 20071030, end: 20071030
  14. NOVALGIN [Concomitant]
     Route: 065
     Dates: start: 20071027, end: 20071027
  15. NOVALGIN [Concomitant]
     Route: 065
     Dates: start: 20071029, end: 20071030
  16. NOVALGIN [Concomitant]
     Route: 065
     Dates: start: 20070910, end: 20070911
  17. BUSCOPAN [Concomitant]
     Indication: ABDOMINAL PAIN
     Route: 065
     Dates: start: 20071027, end: 20071030
  18. CLEXANE [Concomitant]
     Indication: THROMBOSIS PROPHYLAXIS
     Route: 058
     Dates: start: 20071029
  19. CLEXANE [Concomitant]
     Route: 065
     Dates: start: 20071029, end: 20071030
  20. POTASSIUM CHLORIDE [Concomitant]
     Indication: ELECTROLYTE SUBSTITUTION THERAPY
     Route: 042
     Dates: start: 20071030, end: 20071030
  21. METOCLOPRAMID [Concomitant]
     Indication: DIARRHOEA
     Route: 048
     Dates: start: 20071030, end: 20071030
  22. IRENAT [Concomitant]
     Indication: GOITRE
     Route: 048
     Dates: start: 20071028, end: 20071103
  23. IRENAT [Concomitant]
     Route: 065
     Dates: start: 20071024, end: 20071027
  24. PERENTEROL [Concomitant]
     Indication: DIARRHOEA
     Route: 065
     Dates: start: 20071025
  25. BISOPROLOL FUMARATE [Concomitant]
     Indication: HYPERTENSION
     Route: 065
     Dates: start: 20071003, end: 20071030
  26. PANTOZOL [Concomitant]
     Indication: PROPHYLAXIS AGAINST GASTROINTESTINAL ULCER
     Route: 065
     Dates: start: 20071024, end: 20071029
  27. PANTOZOL [Concomitant]
     Route: 065
     Dates: start: 20070913, end: 20071002
  28. PANTOZOL [Concomitant]
     Route: 065
     Dates: start: 20071031
  29. PANTOZOL [Concomitant]
     Route: 065
     Dates: start: 20071006, end: 20071023
  30. PANTOZOL [Concomitant]
     Route: 065
     Dates: start: 20071030, end: 20071030
  31. CARBIMAZOL [Concomitant]
     Indication: GOITRE
     Route: 065
     Dates: start: 20071024
  32. GABAPENTIN [Concomitant]
     Indication: POLYNEUROPATHY
     Route: 065
     Dates: start: 20071006, end: 20071027
  33. GABAPENTIN [Concomitant]
     Route: 065
     Dates: start: 20071030
  34. NORVASC [Concomitant]
     Indication: HYPERTENSION
     Route: 065
     Dates: start: 20071006, end: 20071030
  35. HYDROCHLOROTHIAZIDE [Concomitant]
     Indication: HYPERTENSION
     Route: 065
     Dates: start: 20070910, end: 20071002
  36. HYDROCHLOROTHIAZIDE [Concomitant]
     Route: 065
     Dates: start: 20071028, end: 20071030
  37. METOCLOPRAMIDE HYDROCHLORIDE [Concomitant]
     Indication: ABDOMINAL PAIN
     Route: 065
     Dates: start: 20071028, end: 20071030
  38. SODIUM CHLORIDE 0.9% [Concomitant]
     Indication: ABDOMINAL PAIN
     Route: 065
     Dates: start: 20071004, end: 20071004
  39. SODIUM CHLORIDE 0.9% [Concomitant]
     Route: 065
     Dates: start: 20070912, end: 20070912
  40. SODIUM CHLORIDE 0.9% [Concomitant]
     Route: 065
     Dates: start: 20070913, end: 20070913
  41. SODIUM CHLORIDE 0.9% [Concomitant]
     Route: 065
     Dates: start: 20071003, end: 20071003
  42. SODIUM CHLORIDE 0.9% [Concomitant]
     Route: 065
     Dates: start: 20071026, end: 20071026
  43. SODIUM CHLORIDE 0.9% [Concomitant]
     Route: 065
     Dates: start: 20071005, end: 20071005
  44. SODIUM CHLORIDE 0.9% [Concomitant]
     Route: 065
     Dates: start: 20071025, end: 20071025
  45. SODIUM CHLORIDE 0.9% [Concomitant]
     Route: 065
     Dates: start: 20071027, end: 20071027
  46. SODIUM CHLORIDE 0.9% [Concomitant]
     Route: 065
     Dates: start: 20071028, end: 20071028
  47. SODIUM CHLORIDE 0.9% [Concomitant]
     Route: 065
     Dates: start: 20071028
  48. POTASSIUM CHLORIDE [Concomitant]
     Indication: HYPOKALAEMIA
     Route: 065
     Dates: start: 20070912, end: 20070912
  49. POTASSIUM CHLORIDE [Concomitant]
     Route: 065
     Dates: start: 20071030, end: 20071030
  50. POTASSIUM CHLORIDE [Concomitant]
     Route: 065
     Dates: start: 20071026, end: 20071028
  51. POTASSIUM CHLORIDE [Concomitant]
     Route: 065
     Dates: start: 20071004, end: 20071004
  52. VOMEX [Concomitant]
     Indication: NAUSEA
     Route: 065
     Dates: start: 20071026, end: 20071026
  53. TEMGESIC [Concomitant]
     Indication: ABDOMINAL PAIN
     Route: 065
     Dates: start: 20071028, end: 20071030
  54. METOCLOPRAMIDE [Concomitant]
     Indication: PROPHYLAXIS OF NAUSEA AND VOMITING
     Route: 065
     Dates: start: 20071005, end: 20071005
  55. METOCLOPRAMIDE [Concomitant]
     Route: 065
     Dates: start: 20071028, end: 20071028
  56. METOCLOPRAMIDE [Concomitant]
     Route: 065
     Dates: start: 20071005, end: 20071030
  57. BISOPROLOL FUMARATE [Concomitant]
     Indication: HYPERTENSION
     Route: 065
     Dates: end: 20071002
  58. TRAMADOL HCL [Concomitant]
     Indication: CHEST PAIN
     Route: 065
     Dates: start: 20070913, end: 20070913
  59. FORTECORTIN [Concomitant]
     Indication: PROPHYLAXIS OF NAUSEA AND VOMITING
     Route: 065
     Dates: start: 20071027, end: 20071027
  60. FORTECORTIN [Concomitant]
     Route: 065
     Dates: start: 20071004, end: 20071004
  61. FORTECORTIN [Concomitant]
     Route: 065
     Dates: start: 20071005, end: 20071005
  62. FORTECORTIN [Concomitant]
     Route: 065
     Dates: start: 20070915, end: 20071002
  63. FORTECORTIN [Concomitant]
     Route: 065
     Dates: start: 20071003, end: 20071005
  64. FORTECORTIN [Concomitant]
     Route: 065
     Dates: start: 20071003, end: 20071003
  65. FORTECORTIN [Concomitant]
     Route: 065
     Dates: start: 20070911, end: 20070911
  66. FORTECORTIN [Concomitant]
     Route: 065
     Dates: start: 20071025, end: 20071025
  67. FORTECORTIN [Concomitant]
     Route: 065
     Dates: start: 20071026, end: 20071026
  68. FORTECORTIN [Concomitant]
     Route: 065
     Dates: start: 20070912, end: 20070912
  69. FORTECORTIN [Concomitant]
     Route: 065
     Dates: start: 20070913, end: 20070913
  70. VERGENTAN [Concomitant]
     Indication: PROPHYLAXIS OF NAUSEA AND VOMITING
     Route: 065
     Dates: start: 20071004, end: 20071004
  71. VERGENTAN [Concomitant]
     Route: 065
     Dates: start: 20071026, end: 20071026
  72. VERGENTAN [Concomitant]
     Route: 065
     Dates: start: 20070912, end: 20070912
  73. VERGENTAN [Concomitant]
     Route: 065
     Dates: start: 20070919, end: 20070919
  74. VERGENTAN [Concomitant]
     Route: 065
     Dates: start: 20071011, end: 20071011
  75. ZOFRAN [Concomitant]
     Indication: PROPHYLAXIS OF NAUSEA AND VOMITING
     Route: 065
     Dates: start: 20071026, end: 20071027
  76. ZOFRAN [Concomitant]
     Route: 065
     Dates: start: 20071004, end: 20071004
  77. ZOFRAN [Concomitant]
     Route: 065
     Dates: start: 20070912, end: 20070912
  78. EMEND [Concomitant]
     Indication: PROPHYLAXIS OF NAUSEA AND VOMITING
     Route: 065
     Dates: start: 20071027, end: 20071027
  79. EMEND [Concomitant]
     Route: 065
     Dates: start: 20071026, end: 20071026
  80. EMEND [Concomitant]
     Route: 065
     Dates: start: 20071005, end: 20071005
  81. EMEND [Concomitant]
     Route: 065
     Dates: start: 20071004, end: 20071004
  82. EMEND [Concomitant]
     Route: 065
     Dates: start: 20070912, end: 20070912
  83. EMEND [Concomitant]
     Route: 065
     Dates: start: 20070913, end: 20070914
  84. LASIX [Concomitant]
     Indication: PROPHYLAXIS OF NAUSEA AND VOMITING
     Route: 065
     Dates: start: 20071026, end: 20071027
  85. LASIX [Concomitant]
     Route: 065
     Dates: start: 20070912, end: 20070912
  86. LASIX [Concomitant]
     Route: 065
     Dates: start: 20071004, end: 20071005
  87. INEGY [Concomitant]
     Indication: HYPERCHOLESTEROLAEMIA
     Route: 065
     Dates: end: 20071030
  88. CONCOR PLUS [Concomitant]
     Indication: HYPERTENSION
     Route: 065
     Dates: start: 20071024, end: 20071030
  89. BISOPROLOL FUMARATE [Concomitant]
     Indication: HYPERTENSION
     Route: 065
     Dates: start: 20071031
  90. BISOPROLOL COMP [Concomitant]
     Indication: HYPERTENSION
     Route: 065
     Dates: start: 20071006, end: 20071023
  91. CALCIUMACETAT [Concomitant]
     Indication: CALCIUM DEFICIENCY
     Route: 065
     Dates: start: 20071031
  92. METAMIZOL NATRIUM [Concomitant]
     Indication: CHEST PAIN
     Route: 065
     Dates: start: 20071031
  93. NADROPARIN CALCIUM [Concomitant]
     Indication: THROMBOSIS PROPHYLAXIS
     Route: 065
     Dates: start: 20071101
  94. LAXOBERAL [Concomitant]
     Indication: CONSTIPATION
     Route: 065
     Dates: start: 20070913, end: 20070913
  95. MORPHINE [Concomitant]
     Indication: ABDOMINAL PAIN
     Route: 065
     Dates: start: 20071028, end: 20071028
  96. DIAZEPAM [Concomitant]
     Indication: ABDOMINAL PAIN
     Route: 065
     Dates: start: 20071028, end: 20071028
  97. OXYGEN [Concomitant]
     Indication: DYSPNOEA
     Route: 055
     Dates: start: 20071028, end: 20071028
  98. MAGNESIUM SULFATE [Concomitant]
     Indication: MYALGIA
     Route: 065
     Dates: start: 20071001, end: 20071001

REACTIONS (5)
  - FLUID RETENTION [None]
  - MESENTERIC ARTERY THROMBOSIS [None]
  - POST PROCEDURAL HAEMORRHAGE [None]
  - RENAL INFARCT [None]
  - WOUND INFECTION [None]
